FAERS Safety Report 4818399-0 (Version None)
Quarter: 2005Q4

REPORT INFORMATION
  Report Type: 
  Country: None (occurrence: None)
  Receive Date: 20051031
  Receipt Date: 20051024
  Transmission Date: 20060501
  Serious: Yes (Other)
  Sender: FDA-Public Use
  Company Number: S05-USA-04657-01

PATIENT
  Age: 45 Year
  Sex: Female

DRUGS (10)
  1. THYROID TAB [Suspect]
     Indication: HYPOTHYROIDISM
     Dosage: 90 MG QD PO
     Route: 048
     Dates: start: 20020101
  2. THYROID TAB [Suspect]
     Indication: HYPOTHYROIDISM
     Dosage: 75 MG QD PO
     Route: 048
  3. THYROID TAB [Suspect]
     Indication: HYPOTHYROIDISM
     Dosage: 60 MG QD PO
     Route: 048
  4. THYROID TAB [Suspect]
     Indication: HYPOTHYROIDISM
     Dosage: 30 MG QD PO
     Route: 048
  5. WELLBUTRIN [Suspect]
     Indication: DEPRESSION
     Dosage: 300 MG BID PO
     Route: 048
  6. WELLBUTRIN [Suspect]
     Indication: DEPRESSION
     Dates: start: 19960101
  7. WELLBUTRIN [Suspect]
     Indication: DEPRESSION
  8. FOSAMAX (ALENDRONAT SODIUM) [Concomitant]
  9. MULTI-VITAMIN [Concomitant]
  10. SUPPLEMENTS [Concomitant]

REACTIONS (9)
  - ABDOMINAL DISTENSION [None]
  - ADRENAL INSUFFICIENCY [None]
  - DIARRHOEA [None]
  - FATIGUE [None]
  - FLATULENCE [None]
  - FOOD ALLERGY [None]
  - GASTROINTESTINAL INFECTION [None]
  - HEADACHE [None]
  - NECK PAIN [None]
